FAERS Safety Report 14677140 (Version 1)
Quarter: 2018Q1

REPORT INFORMATION
  Report Type: Spontaneous
  Country: US (occurrence: US)
  Receive Date: 20180323
  Receipt Date: 20180323
  Transmission Date: 20180509
  Serious: Yes (Death)
  Sender: FDA-Public Use
  Company Number: None

PATIENT
  Age: 14 Year
  Sex: Female

DRUGS (1)
  1. OMNITROPE [Suspect]
     Active Substance: SOMATROPIN
     Indication: BODY HEIGHT BELOW NORMAL
     Dosage: 1.6MG 6 DAYS PER WEEK SC
     Route: 058
     Dates: start: 20170106, end: 20180317

REACTIONS (2)
  - Accident [None]
  - Drowning [None]

NARRATIVE: CASE EVENT DATE: 20180317
